FAERS Safety Report 8879229 (Version 2)
Quarter: 2013Q2

REPORT INFORMATION
  Report Type: Spontaneous
  Country: US (occurrence: None)
  Receive Date: 20120430
  Receipt Date: 20120504
  Transmission Date: 20140414
  Serious: Yes (Other)
  Sender: FDA-Public Use
  Company Number: PHEH2008US07931

PATIENT
  Age: 53 Year
  Sex: Female
  Weight: 77.1 kg

DRUGS (4)
  1. VIVELLE [Suspect]
     Indication: MENOPAUSE
     Route: 062
     Dates: start: 20080710, end: 20080822
  2. VIVELLE [Suspect]
     Indication: HOT FLUSH
     Route: 062
     Dates: start: 20080710, end: 20080822
  3. VIVELLE [Suspect]
     Indication: IRRITABILITY
     Route: 062
     Dates: start: 20080710, end: 20080822
  4. VIVELLE [Suspect]
     Indication: INSOMNIA
     Route: 062
     Dates: start: 20080710, end: 20080822

REACTIONS (2)
  - Chloasma [None]
  - Skin discolouration [None]
